FAERS Safety Report 14478021 (Version 1)
Quarter: 2018Q1

REPORT INFORMATION
  Report Type: Spontaneous
  Country: US (occurrence: US)
  Receive Date: 20180201
  Receipt Date: 20180201
  Transmission Date: 20180509
  Serious: No
  Sender: FDA-Public Use
  Company Number: US-B.I. PHARMACEUTICALS,INC./RIDGEFIELD-2018-BI-005034

PATIENT
  Age: 76 Year
  Sex: Male

DRUGS (2)
  1. OFEV [Suspect]
     Active Substance: NINTEDANIB
     Indication: IDIOPATHIC PULMONARY FIBROSIS
     Route: 048
     Dates: start: 2017, end: 2017
  2. OFEV [Suspect]
     Active Substance: NINTEDANIB
     Dosage: 1 CAPSULE TWICE A DAY;  FORM STRENGTH: 100 MG; FORMULATION: CAPSULE? ADMINISTRATION CORRECT? NR(NOT
     Route: 048
     Dates: start: 2017, end: 2018

REACTIONS (1)
  - Abnormal loss of weight [Unknown]

NARRATIVE: CASE EVENT DATE: 2017
